FAERS Safety Report 22040123 (Version 2)
Quarter: 2023Q1

REPORT INFORMATION
  Report Type: Spontaneous
  Country: US (occurrence: US)
  Receive Date: 20230227
  Receipt Date: 20230302
  Transmission Date: 20230418
  Serious: No
  Sender: FDA-Public Use
  Company Number: US-LEO Pharma-348737

PATIENT
  Sex: Male

DRUGS (1)
  1. ADBRY [Suspect]
     Active Substance: TRALOKINUMAB-LDRM
     Indication: Dermatitis atopic
     Dosage: UNKNOWN

REACTIONS (7)
  - Injection site swelling [Recovered/Resolved]
  - Vasculitis [Unknown]
  - Pruritus [Unknown]
  - Erythema [Unknown]
  - Eye discharge [Unknown]
  - Conjunctivitis [Unknown]
  - Eye irritation [Unknown]

NARRATIVE: CASE EVENT DATE: 20230125
